FAERS Safety Report 21394243 (Version 1)
Quarter: 2022Q3

REPORT INFORMATION
  Report Type: Spontaneous
  Country: US (occurrence: US)
  Receive Date: 20220930
  Receipt Date: 20220930
  Transmission Date: 20221026
  Serious: No
  Sender: FDA-Public Use
  Company Number: US-ALK-ABELLO A/S-2022AA002920

PATIENT

DRUGS (4)
  1. HISTAMINE PHOSPHATE [Suspect]
     Active Substance: HISTAMINE PHOSPHATE
     Indication: Skin test
     Dosage: UNK
     Dates: start: 20220817
  2. DIMETHYL FUMARATE [Concomitant]
     Active Substance: DIMETHYL FUMARATE
  3. GUAIFENESIN [Concomitant]
     Active Substance: GUAIFENESIN
  4. MODAFINIL [Concomitant]
     Active Substance: MODAFINIL

REACTIONS (1)
  - False negative investigation result [Unknown]

NARRATIVE: CASE EVENT DATE: 20220817
